FAERS Safety Report 24047193 (Version 1)
Quarter: 2024Q3

REPORT INFORMATION
  Report Type: Report from Study
  Country: US (occurrence: US)
  Receive Date: 20240703
  Receipt Date: 20240703
  Transmission Date: 20241016
  Serious: Yes (Hospitalization, Other)
  Sender: ABBVIE
  Company Number: US-ABBVIE-5787289

PATIENT
  Sex: Female
  Weight: 84 kg

DRUGS (8)
  1. HUMIRA [Suspect]
     Active Substance: ADALIMUMAB
     Indication: Colitis ulcerative
     Dosage: FORM STRENGTH: 40 MILLIGRAM, LAST ADMIN DATE-2024
     Route: 058
     Dates: start: 202402
  2. HUMIRA [Suspect]
     Active Substance: ADALIMUMAB
     Route: 058
     Dates: start: 20240624
  3. PROPAFENONE [Concomitant]
     Active Substance: PROPAFENONE
     Indication: Arrhythmia
     Route: 048
  4. ELIQUIS [Concomitant]
     Active Substance: APIXABAN
     Indication: Atrial fibrillation
     Dosage: FORM STRENGTH: 5 MILLIGRAM,
     Route: 048
  5. WEGOVY [Concomitant]
     Active Substance: SEMAGLUTIDE
     Indication: Weight decreased
     Dosage: FORM STRENGTH: 2.4 MILLIGRAM
     Route: 065
  6. LIALDA [Concomitant]
     Active Substance: MESALAMINE
     Indication: Colitis ulcerative
  7. LIBRAX [Concomitant]
     Active Substance: CHLORDIAZEPOXIDE HYDROCHLORIDE\CLIDINIUM BROMIDE
     Indication: Product used for unknown indication
  8. BROMFED [Suspect]
     Active Substance: BROMPHENIRAMINE MALEATE\DEXTROMETHORPHAN HYDROBROMIDE\PSEUDOEPHEDRINE HYDROCHLORIDE
     Indication: Product used for unknown indication
     Route: 065

REACTIONS (4)
  - Atrial fibrillation [Recovered/Resolved]
  - Insomnia [Recovering/Resolving]
  - Weight increased [Unknown]
  - Cystocele [Recovering/Resolving]

NARRATIVE: CASE EVENT DATE: 20240101
